FAERS Safety Report 8555651-X (Version None)
Quarter: 2012Q3

REPORT INFORMATION
  Report Type: 
  Country: None (occurrence: None)
  Receive Date: 20120801
  Receipt Date: 20120723
  Transmission Date: 20120928
  Serious: Yes (Life-Threatening, Hospitalization)
  Sender: FDA-Public Use
  Company Number: US-009507513-1207USA009857

PATIENT

DRUGS (3)
  1. PERINDOPRIL ERBUMINE [Suspect]
  2. ZOCOR [Suspect]
     Route: 048
  3. AMLODIPINE [Suspect]

REACTIONS (3)
  - WHITE BLOOD CELL COUNT INCREASED [None]
  - NEUTROPHIL COUNT INCREASED [None]
  - THROMBOCYTOPENIA [None]
